FAERS Safety Report 4623255-7 (Version None)
Quarter: 2005Q1

REPORT INFORMATION
  Report Type: 
  Country: None (occurrence: None)
  Receive Date: 20050329
  Receipt Date: 20050321
  Transmission Date: 20050727
  Serious: Yes (Hospitalization, Other)
  Sender: FDA-Public Use
  Company Number: 2005045559

PATIENT
  Age: 45 Year
  Sex: Female
  Weight: 81.6475 kg

DRUGS (3)
  1. NEURONTIN [Suspect]
     Indication: DEPRESSION
     Dosage: (100 MG, QOD) ORAL
     Route: 048
     Dates: start: 19990101
  2. NEURONTIN [Suspect]
     Indication: NEURALGIA
     Dosage: (100 MG, QOD) ORAL
     Route: 048
     Dates: start: 19990101
  3. NORTRIPTYLINE HCL [Concomitant]

REACTIONS (6)
  - CONDITION AGGRAVATED [None]
  - DEPRESSION [None]
  - DRUG INEFFECTIVE [None]
  - HALLUCINATION [None]
  - PAIN [None]
  - PHARMACEUTICAL PRODUCT COMPLAINT [None]
